FAERS Safety Report 14493232 (Version 1)
Quarter: 2018Q1

REPORT INFORMATION
  Report Type: Spontaneous
  Country: US (occurrence: US)
  Receive Date: 20180205
  Receipt Date: 20180205
  Transmission Date: 20180509
  Serious: Yes (Hospitalization)
  Sender: FDA-Public Use
  Company Number: None

PATIENT
  Age: 34 Year
  Sex: Female
  Weight: 152 kg

DRUGS (1)
  1. LOESTRIN NOS [Suspect]
     Active Substance: ETHINYL ESTRADIOL\NORETHINDRONE ACETATE
     Indication: ORAL CONTRACEPTION
     Route: 048

REACTIONS (5)
  - Mental status changes [None]
  - Headache [None]
  - Intracranial venous sinus thrombosis [None]
  - Confusional state [None]
  - Encephalopathy [None]

NARRATIVE: CASE EVENT DATE: 20180122
